FAERS Safety Report 4918771-4 (Version None)
Quarter: 2006Q1

REPORT INFORMATION
  Report Type: 
  Country: None (occurrence: None)
  Receive Date: 20060216
  Receipt Date: 20060203
  Transmission Date: 20060701
  Serious: Yes (Other)
  Sender: FDA-Public Use
  Company Number: 2006BH002541

PATIENT
  Age: 52 Year
  Sex: Male

DRUGS (3)
  1. PHENYTOIN [Suspect]
     Indication: GRAND MAL CONVULSION
     Dosage: 300 MG; EVERY DAY;
  2. FOLIC ACID [Suspect]
     Dosage: SEE IMAGE
     Route: 048
  3. MORPHINE [Concomitant]

REACTIONS (3)
  - ANAEMIA MACROCYTIC [None]
  - GRAND MAL CONVULSION [None]
  - HIP FRACTURE [None]
